FAERS Safety Report 12937616 (Version 1)
Quarter: 2016Q4

REPORT INFORMATION
  Report Type: Spontaneous
  Country: GB (occurrence: GB)
  Receive Date: 20161114
  Receipt Date: 20161114
  Transmission Date: 20170207
  Serious: Yes (Other)
  Sender: FDA-Public Use
  Company Number: GB-TEVA-710607ACC

PATIENT
  Age: 56 Year
  Sex: Female
  Weight: 91.2 kg

DRUGS (9)
  1. OMEPRAZOLE. [Suspect]
     Active Substance: OMEPRAZOLE
     Indication: DYSPEPSIA
     Route: 048
     Dates: start: 20151123, end: 20151125
  2. AMLODIPINE [Concomitant]
     Active Substance: AMLODIPINE BESYLATE
     Dosage: LONG TERM- TAKEN FOR AT LEAST 1 YEAR.
  3. ATORVASTATIN [Concomitant]
     Active Substance: ATORVASTATIN
     Dosage: LONG TERM- TAKEN FOR AT LEAST 1 YEAR.
  4. LISINOPRIL. [Concomitant]
     Active Substance: LISINOPRIL
     Dosage: LONG TERM- TAKEN FOR AT LEAST 1 YEAR.
  5. METFORMIN [Concomitant]
     Active Substance: METFORMIN HYDROCHLORIDE
     Dosage: LONG TERM- TAKEN FOR AT LEAST 1 YEAR.
  6. TRIMETHOPRIM. [Concomitant]
     Active Substance: TRIMETHOPRIM
     Dosage: 600 MILLIGRAM DAILY;
     Dates: start: 20151119, end: 20151126
  7. PAROXETINE. [Concomitant]
     Active Substance: PAROXETINE
     Dosage: LONG TERM- TAKEN FOR AT LEAST 1 YEAR.
  8. GABAPENTIN. [Concomitant]
     Active Substance: GABAPENTIN
     Dosage: LONG TERM- TAKEN FOR AT LEAST 1 YEAR.
  9. BETAHISTINE [Concomitant]
     Active Substance: BETAHISTINE
     Dosage: LONG TERM- TAKEN FOR AT LEAST 1 YEAR.

REACTIONS (3)
  - Peripheral swelling [Recovered/Resolved]
  - Arthralgia [Recovered/Resolved]
  - Polyarthritis [Recovered/Resolved]

NARRATIVE: CASE EVENT DATE: 20151203
